FAERS Safety Report 25945186 (Version 1)
Quarter: 2025Q4

REPORT INFORMATION
  Report Type: Spontaneous
  Country: US (occurrence: US)
  Receive Date: 20251021
  Receipt Date: 20251021
  Transmission Date: 20260118
  Serious: No
  Sender: MERCK SHARP & DOHME LLC
  Company Number: US-009507513-2332187

PATIENT
  Age: 79 Year
  Sex: Male

DRUGS (2)
  1. KEYTRUDA [Suspect]
     Active Substance: PEMBROLIZUMAB
     Indication: Bladder cancer recurrent
     Route: 065
  2. OZEMPIC [Concomitant]
     Active Substance: SEMAGLUTIDE

REACTIONS (19)
  - Wheezing [Recovering/Resolving]
  - Oropharyngeal pain [Recovering/Resolving]
  - Diarrhoea [Recovering/Resolving]
  - Walking aid user [Recovering/Resolving]
  - Asthenia [Recovering/Resolving]
  - Somnolence [Recovering/Resolving]
  - Headache [Recovering/Resolving]
  - Dyspnoea [Recovering/Resolving]
  - Chest pain [Recovering/Resolving]
  - Fatigue [Recovering/Resolving]
  - Chromaturia [Recovering/Resolving]
  - Joint swelling [Recovering/Resolving]
  - Muscular weakness [Recovering/Resolving]
  - Feeling cold [Recovering/Resolving]
  - Alopecia [Recovering/Resolving]
  - Chills [Recovering/Resolving]
  - Photophobia [Recovering/Resolving]
  - Thirst [Recovering/Resolving]
  - Ill-defined disorder [Recovering/Resolving]
